FAERS Safety Report 16428195 (Version 1)
Quarter: 2019Q2

REPORT INFORMATION
  Report Type: Spontaneous
  Country: MT (occurrence: MT)
  Receive Date: 20190613
  Receipt Date: 20190613
  Transmission Date: 20190711
  Serious: Yes (Other)
  Sender: FDA-Public Use
  Company Number: MT-MYLANLABS-2019M1055414

PATIENT
  Age: 12 Year
  Sex: Male
  Weight: 52 kg

DRUGS (1)
  1. RISPERIDONE. [Suspect]
     Active Substance: RISPERIDONE
     Indication: AUTISM SPECTRUM DISORDER
     Dosage: 1 MILLIGRAM, BID
     Route: 065
     Dates: start: 20181209, end: 20181218

REACTIONS (1)
  - Therapeutic product effect decreased [Recovering/Resolving]
